FAERS Safety Report 8925962 (Version 2)
Quarter: 2013Q1

REPORT INFORMATION
  Report Type: Spontaneous
  Country: CA (occurrence: CA)
  Receive Date: 20121126
  Receipt Date: 20130111
  Transmission Date: 20140127
  Serious: Yes (Other)
  Sender: FDA-Public Use
  Company Number: PHHY2012CA107370

PATIENT
  Age: 78 Year
  Sex: Female

DRUGS (11)
  1. EXJADE [Suspect]
     Indication: MYELODYSPLASTIC SYNDROME
     Dosage: 750 MG, DAILY
     Route: 048
  2. EXJADE [Suspect]
     Indication: IRON OVERLOAD
     Dosage: UNK
  3. EXJADE [Suspect]
     Dosage: 750 MG, DAILY
     Route: 048
     Dates: start: 201211
  4. METFORMIN [Concomitant]
  5. TYLENOL [Concomitant]
  6. CARBOCAL [Concomitant]
  7. CLONIDINE [Concomitant]
  8. SYNTHROID [Concomitant]
  9. RANITIDINE [Concomitant]
  10. SIMVASTATIN [Concomitant]
  11. QUININE [Concomitant]

REACTIONS (3)
  - Fall [Unknown]
  - Hypertension [Unknown]
  - Renal disorder [Unknown]
